FAERS Safety Report 14332142 (Version 2)
Quarter: 2018Q1

REPORT INFORMATION
  Report Type: Spontaneous
  Country: ES (occurrence: ES)
  Receive Date: 20171228
  Receipt Date: 20180110
  Transmission Date: 20180509
  Serious: Yes (Life-Threatening)
  Sender: FDA-Public Use
  Company Number: ES-SA-2017SA266260

PATIENT
  Age: 45 Year
  Sex: Male
  Weight: 67.1 kg

DRUGS (9)
  1. PRALUENT [Suspect]
     Active Substance: ALIROCUMAB
     Indication: TYPE IIA HYPERLIPIDAEMIA
     Dosage: FREQUENCY: EVERY 15 DAYS
     Route: 058
     Dates: start: 20170929
  2. PREDNISONA [Interacting]
     Active Substance: PREDNISONE
     Indication: RENAL TRANSPLANT
     Dosage: DOSE: 5 MG AL DESAYUNO
     Route: 048
     Dates: start: 20150729
  3. ADVAGRAF [Interacting]
     Active Substance: TACROLIMUS
     Indication: TRANSPLANT
     Dosage: DOSE: 1 MG AL D?A
     Route: 048
     Dates: start: 20151016
  4. ALIROCUMAB PREFILLED PEN [Suspect]
     Active Substance: ALIROCUMAB
     Indication: TYPE IIA HYPERLIPIDAEMIA
     Dates: start: 20170929
  5. LOBIVON [Concomitant]
     Active Substance: NEBIVOLOL HYDROCHLORIDE
     Indication: HYPERTENSION
     Dosage: 1 COMPRIMIDO CADA 24 HORAS
     Route: 048
     Dates: start: 20151215
  6. PROFER [Concomitant]
     Dosage: 1 SACHET DAILY
     Route: 048
     Dates: start: 20170824
  7. SODIUM BICARBONATE. [Concomitant]
     Active Substance: SODIUM BICARBONATE
     Route: 048
     Dates: start: 20140730
  8. CERTICAN [Interacting]
     Active Substance: EVEROLIMUS
     Indication: RENAL TRANSPLANT
     Dosage: DOSE:1 COMPRIMIDO CADA 12 HORAS
     Route: 048
     Dates: start: 20170401
  9. OMACOR [Concomitant]
     Active Substance: OMEGA-3-ACID ETHYL ESTERS
     Indication: LIPIDS
     Route: 048
     Dates: start: 20161103

REACTIONS (2)
  - Pneumonia [Recovered/Resolved]
  - Drug interaction [Recovered/Resolved]

NARRATIVE: CASE EVENT DATE: 20171017
